FAERS Safety Report 4857835-0 (Version None)
Quarter: 2005Q4

REPORT INFORMATION
  Report Type: 
  Country: None (occurrence: None)
  Receive Date: 20051219
  Receipt Date: 20050411
  Transmission Date: 20060501
  Serious: No
  Sender: FDA-Public Use
  Company Number: US-GLAXOSMITHKLINE-A0553532A

PATIENT
  Age: 73 Year
  Sex: Female

DRUGS (3)
  1. NICODERM CQ [Suspect]
     Dates: start: 20050128
  2. NICODERM CQ [Suspect]
     Dates: end: 20050410
  3. CLONAZEPAM [Concomitant]

REACTIONS (2)
  - HEADACHE [None]
  - INSOMNIA [None]
